FAERS Safety Report 9790094 (Version 1)
Quarter: 2013Q4

REPORT INFORMATION
  Report Type: Spontaneous
  Country: US (occurrence: None)
  Receive Date: 20131230
  Receipt Date: 20131230
  Transmission Date: 20140711
  Serious: Yes (Life-Threatening, Other)
  Sender: FDA-Public Use
  Company Number: None

PATIENT
  Age: 68 Year
  Sex: Female
  Weight: 88.45 kg

DRUGS (6)
  1. MULTAQ [Suspect]
     Indication: ATRIAL FIBRILLATION
     Dosage: 843739
     Route: 048
     Dates: start: 20130501, end: 20131204
  2. MULTAQ [Concomitant]
  3. METOPROLOL ER [Concomitant]
  4. XERALTO [Concomitant]
  5. PRAVASTATIN [Concomitant]
  6. DIOVAN [Concomitant]

REACTIONS (5)
  - Palpitations [None]
  - Arrhythmia [None]
  - Heart rate increased [None]
  - Product quality issue [None]
  - Incorrect product storage [None]
